FAERS Safety Report 7718205-0 (Version None)
Quarter: 2011Q3

REPORT INFORMATION
  Report Type: 
  Country: None (occurrence: None)
  Receive Date: 20110830
  Receipt Date: 20110817
  Transmission Date: 20111222
  Serious: Yes (Other)
  Sender: FDA-Public Use
  Company Number: PHHY2010DE77549

PATIENT
  Sex: Female

DRUGS (3)
  1. DIOVAN HCT [Suspect]
     Dosage: ? DF/D (80/6.25)
     Dates: start: 20100101
  2. RASILEZ [Suspect]
     Dosage: UNK UKN, UNK
     Dates: start: 20100101, end: 20110501
  3. BISOPROLOL FUMARATE [Concomitant]

REACTIONS (4)
  - WEIGHT DECREASED [None]
  - DIZZINESS [None]
  - WRONG TECHNIQUE IN DRUG USAGE PROCESS [None]
  - BLOOD PRESSURE FLUCTUATION [None]
